FAERS Safety Report 23666415 (Version 1)
Quarter: 2024Q1

REPORT INFORMATION
  Report Type: Spontaneous
  Country: IT (occurrence: IT)
  Receive Date: 20240324
  Receipt Date: 20240324
  Transmission Date: 20240410
  Serious: Yes (Other)
  Sender: FDA-Public Use
  Company Number: IT-MINISAL02-974402

PATIENT
  Age: 55 Year
  Sex: Female
  Weight: 54 kg

DRUGS (2)
  1. PAROXETINE [Suspect]
     Active Substance: PAROXETINE
     Indication: Depression
     Dosage: 20 MILLIGRAM, ONCE A DAY
     Route: 048
  2. KISQALI [Suspect]
     Active Substance: RIBOCICLIB
     Indication: Metastatic neoplasm
     Dosage: 600 MILLIGRAM (600MG/DAY FOR 21 CONSECUTIVE DAYS FOLLOWED BY A 7-DAY BREAK FROM TREATMENT. SUSPENDED
     Route: 048
     Dates: start: 20230214

REACTIONS (2)
  - Electrocardiogram QT prolonged [Recovered/Resolved]
  - Atrial conduction time prolongation [Recovered/Resolved]

NARRATIVE: CASE EVENT DATE: 20230428
